FAERS Safety Report 19981034 (Version 4)
Quarter: 2021Q4

REPORT INFORMATION
  Report Type: Report from Study
  Country: US (occurrence: None)
  Receive Date: 20211021
  Receipt Date: 20211122
  Transmission Date: 20220303
  Serious: Yes (Hospitalization)
  Sender: FDA-Public Use
  Company Number: US-EISAI MEDICAL RESEARCH-EC-2021-099784

PATIENT
  Age: 77 Year
  Sex: Female

DRUGS (2)
  1. LENVIMA [Suspect]
     Active Substance: LENVATINIB
     Indication: Thyroid cancer
     Route: 048
     Dates: start: 20210907, end: 20210928
  2. LENVIMA [Suspect]
     Active Substance: LENVATINIB
     Route: 048
     Dates: start: 20210929, end: 20211012

REACTIONS (8)
  - Myocardial infarction [Recovering/Resolving]
  - Muscular weakness [Unknown]
  - Dizziness [Recovering/Resolving]
  - Constipation [Unknown]
  - Fatigue [Recovering/Resolving]
  - Arthralgia [Unknown]
  - Dehydration [Unknown]
  - Thyroglobulin increased [Unknown]

NARRATIVE: CASE EVENT DATE: 20210101
